FAERS Safety Report 21872976 (Version 1)
Quarter: 2023Q1

REPORT INFORMATION
  Report Type: Spontaneous
  Country: US (occurrence: None)
  Receive Date: 20230116
  Receipt Date: 20230116
  Transmission Date: 20230417
  Serious: Yes (Other)
  Sender: FDA-Public Use
  Company Number: None

PATIENT
  Age: 56 Year
  Sex: Male

DRUGS (3)
  1. BOTOX [Suspect]
     Active Substance: ONABOTULINUMTOXINA
     Indication: Torticollis
     Dosage: OTHER FREQUENCY : EVERY 12 WEEKS;?
     Route: 030
     Dates: start: 20150814
  2. MAXALT TAB [Concomitant]
  3. MULTI-VITAMIN TAB [Concomitant]

REACTIONS (1)
  - Leukaemia [None]

NARRATIVE: CASE EVENT DATE: 20230116
